FAERS Safety Report 16417492 (Version 1)
Quarter: 2019Q2

REPORT INFORMATION
  Report Type: Other
  Country: US (occurrence: US)
  Receive Date: 20190611
  Receipt Date: 20190611
  Transmission Date: 20190711
  Serious: Yes (Death)
  Sender: FDA-Public Use
  Company Number: US-ALSI-201900261

PATIENT
  Age: 20 Year
  Sex: Male

DRUGS (1)
  1. HELIUM USP HELIUM [Suspect]
     Active Substance: HELIUM
     Indication: COMPLETED SUICIDE
     Route: 055

REACTIONS (2)
  - Asphyxia [Fatal]
  - Completed suicide [Fatal]
